FAERS Safety Report 11627501 (Version 1)
Quarter: 2015Q4

REPORT INFORMATION
  Report Type: Report from Study
  Country: US (occurrence: US)
  Receive Date: 20151013
  Receipt Date: 20151013
  Transmission Date: 20160314
  Serious: Yes (Other)
  Sender: FDA-Public Use
  Company Number: PHEH2015US020142

PATIENT
  Age: 37 Year
  Sex: Female
  Weight: 147.48 kg

DRUGS (9)
  1. LEVOTHYROXINE. [Concomitant]
     Active Substance: LEVOTHYROXINE
     Indication: PRODUCT USED FOR UNKNOWN INDICATION
     Route: 065
  2. VITAMIN D2 [Concomitant]
     Active Substance: ERGOCALCIFEROL
     Indication: PRODUCT USED FOR UNKNOWN INDICATION
     Route: 065
  3. LOESTRIN NOS [Concomitant]
     Active Substance: ETHINYL ESTRADIOL\NORETHINDRONE ACETATE
     Indication: PRODUCT USED FOR UNKNOWN INDICATION
     Route: 065
  4. MELOXICAM. [Concomitant]
     Active Substance: MELOXICAM
     Indication: PRODUCT USED FOR UNKNOWN INDICATION
     Route: 065
  5. GILENYA [Suspect]
     Active Substance: FINGOLIMOD HYDROCHLORIDE
     Indication: MULTIPLE SCLEROSIS
     Dosage: 0.5 MG, QD
     Route: 048
     Dates: start: 20121115
  6. BEPREVE [Concomitant]
     Active Substance: BEPOTASTINE BESILATE
     Indication: PRODUCT USED FOR UNKNOWN INDICATION
     Route: 065
  7. TRIAMTERENE AND HYDROCHLOROTHIAZIDE [Concomitant]
     Active Substance: HYDROCHLOROTHIAZIDE\TRIAMTERENE
     Indication: PRODUCT USED FOR UNKNOWN INDICATION
     Route: 065
  8. PROPRANOLOL [Concomitant]
     Active Substance: PROPRANOLOL\PROPRANOLOL HYDROCHLORIDE
     Indication: PRODUCT USED FOR UNKNOWN INDICATION
     Route: 065
  9. VITAMIN B12 [Concomitant]
     Active Substance: CYANOCOBALAMIN
     Indication: PRODUCT USED FOR UNKNOWN INDICATION
     Route: 065

REACTIONS (29)
  - Cognitive disorder [Unknown]
  - Temperature intolerance [Unknown]
  - Blood pressure increased [Unknown]
  - Paraesthesia [Unknown]
  - Fatigue [Unknown]
  - Vitamin D decreased [Unknown]
  - Sinusitis [Unknown]
  - Tremor [Unknown]
  - Emotional disorder [Unknown]
  - Hypoaesthesia [Unknown]
  - Bladder dysfunction [Unknown]
  - Sexual dysfunction [Unknown]
  - Musculoskeletal stiffness [Unknown]
  - Muscle spasticity [Unknown]
  - Lhermitte^s sign [Unknown]
  - Muscle spasms [Unknown]
  - Functional gastrointestinal disorder [Unknown]
  - Asthenia [Unknown]
  - Pain [Unknown]
  - Coordination abnormal [Unknown]
  - Optic neuritis [Unknown]
  - Dysarthria [Unknown]
  - VIIth nerve paralysis [Unknown]
  - Gait disturbance [Unknown]
  - Dizziness [Unknown]
  - Depression [Unknown]
  - Trigeminal neuralgia [Unknown]
  - Lymphopenia [Unknown]
  - Relapsing-remitting multiple sclerosis [Unknown]

NARRATIVE: CASE EVENT DATE: 20150611
